FAERS Safety Report 9779494 (Version 2)
Quarter: 2014Q1

REPORT INFORMATION
  Report Type: Spontaneous
  Country: IT (occurrence: IT)
  Receive Date: 20131223
  Receipt Date: 20140226
  Transmission Date: 20141002
  Serious: Yes (Hospitalization)
  Sender: FDA-Public Use
  Company Number: IT-ACTAVIS-2013-22921

PATIENT
  Age: 58 Year
  Sex: Female
  Weight: 70 kg

DRUGS (2)
  1. PARACETAMOL (UNKNOWN) [Suspect]
     Indication: TENDERNESS
     Dosage: 1 DF, DAILY
     Route: 048
     Dates: start: 20131001, end: 20131020
  2. SINTROM [Suspect]
     Indication: ANTICOAGULANT THERAPY
     Dosage: 4 MG, 1500 MG, DAILY
     Route: 048
     Dates: start: 20121101, end: 20131020

REACTIONS (2)
  - International normalised ratio increased [Recovering/Resolving]
  - Drug interaction [Recovering/Resolving]
